FAERS Safety Report 8117955-4 (Version None)
Quarter: 2012Q1

REPORT INFORMATION
  Report Type: 
  Country: None (occurrence: None)
  Receive Date: 20120207
  Receipt Date: 20120126
  Transmission Date: 20120608
  Serious: Yes (Hospitalization)
  Sender: FDA-Public Use
  Company Number: JP-JNJFOC-20110606829

PATIENT
  Sex: Male
  Weight: 58 kg

DRUGS (8)
  1. ISONIAZID [Concomitant]
     Route: 048
     Dates: start: 20090110, end: 20110514
  2. ISONIAZID [Concomitant]
     Dosage: INTRAVENOUS DRIP INFUSION
     Route: 048
     Dates: start: 20110601, end: 20110708
  3. REMICADE [Suspect]
     Indication: CROHN'S DISEASE
     Dosage: 2ND THRU 11TH DOSES
     Route: 042
  4. REMICADE [Suspect]
     Dosage: 12TH DOSE
     Route: 042
     Dates: start: 20110326
  5. PENTASA [Concomitant]
     Indication: CROHN'S DISEASE
     Route: 048
     Dates: start: 19950401, end: 20110515
  6. REMICADE [Suspect]
     Route: 042
     Dates: start: 20090228
  7. ELENTAL [Concomitant]
     Indication: CROHN'S DISEASE
     Dosage: 3 TO 4 PER DAY
     Route: 048
     Dates: start: 20080801, end: 20110514
  8. ISONIAZID [Concomitant]
     Indication: ANTIBIOTIC PROPHYLAXIS
     Dosage: ORAL
     Route: 048
     Dates: start: 20110709

REACTIONS (2)
  - INTESTINAL OBSTRUCTION [None]
  - PULMONARY TUBERCULOSIS [None]
